FAERS Safety Report 9263459 (Version 1)
Quarter: 2013Q2

REPORT INFORMATION
  Report Type: Spontaneous
  Country: US (occurrence: US)
  Receive Date: 20130430
  Receipt Date: 20130430
  Transmission Date: 20140414
  Serious: No
  Sender: FDA-Public Use
  Company Number: US-ABBOTT-13P-163-1075310-00

PATIENT
  Sex: Female

DRUGS (14)
  1. CREON [Suspect]
     Indication: DYSPEPSIA
     Dosage: 3 CAPSULES WITH MEALS AND 2 CAPSULES WITH SNACKS
     Dates: start: 20130119
  2. CYMBALTA [Concomitant]
     Indication: DEPRESSION
  3. NITROSTAT [Concomitant]
     Indication: CARDIAC DISORDER
  4. RANEXA [Concomitant]
     Indication: ANGINA PECTORIS
  5. RANEXA [Concomitant]
     Indication: PROPHYLAXIS
  6. ISOSORBIDE MONOHYDRATE ER [Concomitant]
     Indication: CARDIAC DISORDER
  7. PLAVIX [Concomitant]
     Indication: ANTICOAGULANT THERAPY
  8. RANITIDINE [Concomitant]
     Indication: PRODUCT USED FOR UNKNOWN INDICATION
  9. XANAX [Concomitant]
     Indication: ANXIETY
  10. DONEPEZIL [Concomitant]
     Indication: PRODUCT USED FOR UNKNOWN INDICATION
  11. NORVASC [Concomitant]
     Indication: HYPERTENSION
  12. TOPROL XL [Concomitant]
     Indication: PRODUCT USED FOR UNKNOWN INDICATION
  13. ATORVASTATIN [Concomitant]
     Indication: BLOOD CHOLESTEROL INCREASED
  14. VICODIN [Concomitant]
     Indication: PRODUCT USED FOR UNKNOWN INDICATION
     Dosage: 5/500

REACTIONS (1)
  - Diarrhoea [Not Recovered/Not Resolved]
